FAERS Safety Report 10668485 (Version 5)
Quarter: 2015Q2

REPORT INFORMATION
  Report Type: Report from Study
  Country: US (occurrence: US)
  Receive Date: 20141222
  Receipt Date: 20150609
  Transmission Date: 20150821
  Serious: Yes (Hospitalization, Other)
  Sender: FDA-Public Use
  Company Number: US-SA-2014SA155062

PATIENT
  Age: 66 Year
  Sex: Male

DRUGS (2)
  1. AUBAGIO [Suspect]
     Active Substance: TERIFLUNOMIDE
     Indication: MULTIPLE SCLEROSIS
     Route: 048
     Dates: start: 20140730, end: 20150218
  2. IBUPROFEN. [Suspect]
     Active Substance: IBUPROFEN
     Indication: PAIN
     Route: 065

REACTIONS (7)
  - Gait disturbance [Unknown]
  - Hearing impaired [Unknown]
  - Diarrhoea [Unknown]
  - Ulcer haemorrhage [Unknown]
  - Back pain [Unknown]
  - Burning sensation [Unknown]
  - Intervertebral disc injury [Unknown]

NARRATIVE: CASE EVENT DATE: 201412
